FAERS Safety Report 18812089 (Version 2)
Quarter: 2021Q1

REPORT INFORMATION
  Report Type: Spontaneous
  Country: JP (occurrence: JP)
  Receive Date: 20210129
  Receipt Date: 20210212
  Transmission Date: 20210419
  Serious: Yes (Other)
  Sender: FDA-Public Use
  Company Number: JP-ANIPHARMA-2021-JP-000026

PATIENT
  Age: 73 Year
  Sex: Female

DRUGS (6)
  1. PITAVASTATIN CALCIUM [Concomitant]
     Active Substance: PITAVASTATIN CALCIUM
     Dosage: UNKNOWN DOSE AND FREQUENCY
     Route: 065
     Dates: start: 2016
  2. NOBILINK EX [Concomitant]
     Route: 065
     Dates: start: 2020
  3. ETIZOLAM [Concomitant]
     Active Substance: ETIZOLAM
     Dosage: UNKNOWN DOSE AND FREQUENCY
     Route: 065
     Dates: start: 2016
  4. MIRTAZAPINE. [Concomitant]
     Active Substance: MIRTAZAPINE
     Dosage: UNKNOWN DOSE AND FREQUENCY
     Route: 065
     Dates: start: 2014
  5. ARIMIDEX [Suspect]
     Active Substance: ANASTROZOLE
     Indication: BREAST CANCER FEMALE
     Dosage: 1 MG QD
     Route: 048
     Dates: start: 201912, end: 20210202
  6. UNSPECIFIED [Concomitant]
     Active Substance: UNSPECIFIED INGREDIENT
     Route: 065
     Dates: start: 2016

REACTIONS (1)
  - Interstitial lung disease [Unknown]

NARRATIVE: CASE EVENT DATE: 202010
